FAERS Safety Report 11754222 (Version 1)
Quarter: 2015Q4

REPORT INFORMATION
  Report Type: Spontaneous
  Country: AU (occurrence: AU)
  Receive Date: 20151119
  Receipt Date: 20151119
  Transmission Date: 20160304
  Serious: Yes (Death, Other)
  Sender: FDA-Public Use
  Company Number: AU-CELGENE-AUS-2015111330

PATIENT

DRUGS (3)
  1. THALIDOMIDE CELGENE [Suspect]
     Active Substance: THALIDOMIDE
     Indication: MYELODYSPLASTIC SYNDROME
     Route: 048
  2. AZACITIDINE. [Suspect]
     Active Substance: AZACITIDINE
     Indication: MYELODYSPLASTIC SYNDROME
     Dosage: 75 MILLIGRAM/SQ. METER
     Route: 058
  3. THALIDOMIDE CELGENE [Suspect]
     Active Substance: THALIDOMIDE
     Route: 048

REACTIONS (26)
  - Abdominal wall haemorrhage [Unknown]
  - Febrile neutropenia [Unknown]
  - Skin infection [Unknown]
  - Diarrhoea [Unknown]
  - Erythema multiforme [Unknown]
  - Thrombosis [Unknown]
  - Procedural haemorrhage [Unknown]
  - Urinary bladder haemorrhage [Unknown]
  - Rash [Unknown]
  - Haemorrhage [Fatal]
  - Infection [Fatal]
  - Thrombocytopenia [Unknown]
  - Peripheral sensory neuropathy [Unknown]
  - Injection site reaction [Unknown]
  - Death [Fatal]
  - Disease progression [Fatal]
  - Constipation [Unknown]
  - Urinary tract infection [Unknown]
  - Cerebral haemorrhage [Unknown]
  - Neutropenia [Unknown]
  - Mouth haemorrhage [Unknown]
  - Anaemia [Unknown]
  - Fatigue [Unknown]
  - Pneumonia [Unknown]
  - Upper respiratory tract infection [Unknown]
  - Nausea [Unknown]
